FAERS Safety Report 11116359 (Version 2)
Quarter: 2015Q2

REPORT INFORMATION
  Report Type: Spontaneous
  Country: JP (occurrence: JP)
  Receive Date: 20150515
  Receipt Date: 20150612
  Transmission Date: 20150821
  Serious: Yes (Other)
  Sender: FDA-Public Use
  Company Number: JP-BRISTOL-MYERS SQUIBB COMPANY-21588116

PATIENT
  Age: 60 Year
  Sex: Male

DRUGS (24)
  1. ERBITUX [Suspect]
     Active Substance: CETUXIMAB
     Dosage: 200 MG/M2, QWK
     Route: 041
     Dates: start: 20141217, end: 20150108
  2. ERBITUX [Suspect]
     Active Substance: CETUXIMAB
     Dosage: 200 MG/M2, QWK
     Route: 041
     Dates: start: 20150209, end: 20150309
  3. PACLITAXEL. [Suspect]
     Active Substance: PACLITAXEL
     Indication: SQUAMOUS CELL CARCINOMA OF HEAD AND NECK
     Dosage: 100 MG/M2, QWK
     Route: 041
     Dates: start: 20140806, end: 20140813
  4. PACLITAXEL. [Suspect]
     Active Substance: PACLITAXEL
     Dosage: 100 MG/M2, QWK
     Route: 041
     Dates: start: 20140919, end: 20140926
  5. CARBOPLATIN. [Suspect]
     Active Substance: CARBOPLATIN
     Dosage: 1 DF, QWK
     Route: 041
     Dates: start: 20141106, end: 20141113
  6. CARBOPLATIN. [Suspect]
     Active Substance: CARBOPLATIN
     Dosage: 1 DF, QWK
     Route: 041
     Dates: start: 20141127, end: 20141204
  7. ERBITUX [Suspect]
     Active Substance: CETUXIMAB
     Indication: SQUAMOUS CELL CARCINOMA OF HEAD AND NECK
     Dosage: 400 MG/M2, QWK
     Route: 041
     Dates: start: 20140806, end: 20140806
  8. ERBITUX [Suspect]
     Active Substance: CETUXIMAB
     Dosage: 250 MG/M2, QWK
     Route: 041
     Dates: start: 20140828, end: 20140911
  9. ERBITUX [Suspect]
     Active Substance: CETUXIMAB
     Dosage: 200 MG/M2, QWK
     Route: 041
     Dates: start: 20141106, end: 20141120
  10. ERBITUX [Suspect]
     Active Substance: CETUXIMAB
     Dosage: 250 MG/M2, QWK
     Route: 041
     Dates: start: 20140919, end: 20141002
  11. ERBITUX [Suspect]
     Active Substance: CETUXIMAB
     Dosage: 250 MG/M2, QWK
     Route: 041
     Dates: start: 20141009, end: 20141029
  12. ERBITUX [Suspect]
     Active Substance: CETUXIMAB
     Dosage: 200 MG/M2, QWK
     Route: 041
     Dates: start: 20141127, end: 20141211
  13. ERBITUX [Suspect]
     Active Substance: CETUXIMAB
     Dosage: 200 MG/M2, QWK
     Route: 041
     Dates: start: 20150115, end: 20150202
  14. CARBOPLATIN. [Suspect]
     Active Substance: CARBOPLATIN
     Dosage: 1 DF, QWK
     Route: 041
     Dates: start: 20140919, end: 20140926
  15. ERBITUX [Suspect]
     Active Substance: CETUXIMAB
     Dosage: 250 MG/M2, QWK
     Route: 041
     Dates: start: 20140813, end: 20140821
  16. PACLITAXEL. [Suspect]
     Active Substance: PACLITAXEL
     Dosage: 100 MG/M2, QWK
     Route: 041
     Dates: start: 20141009, end: 20141016
  17. PACLITAXEL. [Suspect]
     Active Substance: PACLITAXEL
     Dosage: 100 UNK, UNK
     Route: 041
     Dates: start: 20141106, end: 20141113
  18. CARBOPLATIN. [Suspect]
     Active Substance: CARBOPLATIN
     Indication: SQUAMOUS CELL CARCINOMA OF HEAD AND NECK
     Dosage: 1 DF, QWK
     Route: 041
     Dates: start: 20140806, end: 20140813
  19. CARBOPLATIN. [Suspect]
     Active Substance: CARBOPLATIN
     Dosage: 1 DF, QWK
     Route: 041
     Dates: start: 20140828, end: 20140904
  20. CARBOPLATIN. [Suspect]
     Active Substance: CARBOPLATIN
     Dosage: 1 DF, QWK
     Route: 041
     Dates: start: 20141009, end: 20141016
  21. ERBITUX [Suspect]
     Active Substance: CETUXIMAB
     Dosage: 200 MG/M2, UNK
     Route: 041
     Dates: start: 20150323, end: 20150406
  22. PACLITAXEL. [Suspect]
     Active Substance: PACLITAXEL
     Dosage: 100 MG/M2, QWK
     Route: 041
     Dates: start: 20140828, end: 20140904
  23. PACLITAXEL. [Suspect]
     Active Substance: PACLITAXEL
     Dosage: 100 UNK, UNK
     Route: 041
     Dates: start: 20141009, end: 20141016
  24. PACLITAXEL. [Suspect]
     Active Substance: PACLITAXEL
     Dosage: 100 UNK, UNK
     Route: 041
     Dates: start: 20141127, end: 20141204

REACTIONS (25)
  - Decreased appetite [Unknown]
  - Mucosal inflammation [Unknown]
  - Hyponatraemia [Unknown]
  - Dermatitis acneiform [Unknown]
  - Fatigue [Unknown]
  - Alopecia [Unknown]
  - Wound infection [Unknown]
  - Proteinuria [Unknown]
  - Hypercalcaemia [Unknown]
  - Skin reaction [Unknown]
  - Jaw fracture [Unknown]
  - Haemoglobin decreased [Unknown]
  - Hypomagnesaemia [Unknown]
  - Dysphagia [Unknown]
  - Peripheral sensory neuropathy [Unknown]
  - Hyperkalaemia [Unknown]
  - Hypoalbuminaemia [Unknown]
  - Myalgia [Unknown]
  - Stomatitis [Unknown]
  - Paronychia [Unknown]
  - Neutrophil count decreased [Unknown]
  - Hypocalcaemia [Unknown]
  - Dry mouth [Unknown]
  - Constipation [Unknown]
  - Hypokalaemia [Unknown]

NARRATIVE: CASE EVENT DATE: 2014
